FAERS Safety Report 7557173-1 (Version None)
Quarter: 2011Q2

REPORT INFORMATION
  Report Type: 
  Country: None (occurrence: None)
  Receive Date: 20110620
  Receipt Date: 20110615
  Transmission Date: 20111010
  Serious: Yes (Death, Other)
  Sender: FDA-Public Use
  Company Number: FI-ROCHE-751223

PATIENT
  Sex: Female
  Weight: 60 kg

DRUGS (11)
  1. TOCILIZUMAB [Suspect]
     Route: 042
     Dates: start: 20100723, end: 20100820
  2. RITUXIMAB [Suspect]
     Indication: RHEUMATOID ARTHRITIS
     Dosage: FREQUENCY: TWO CYCLES
     Route: 042
     Dates: end: 20090201
  3. TOCILIZUMAB [Suspect]
     Route: 042
     Dates: start: 20100525
  4. PREDNISOLONE [Concomitant]
     Indication: RHEUMATOID ARTHRITIS
     Route: 048
  5. TOCILIZUMAB [Suspect]
     Dosage: MONTHLY
     Route: 042
     Dates: start: 20100915, end: 20101216
  6. TOCILIZUMAB [Suspect]
     Indication: RHEUMATOID ARTHRITIS
     Dosage: ONCE A MONTH
     Route: 042
     Dates: start: 20100126
  7. TOCILIZUMAB [Suspect]
     Route: 042
  8. HYDROXYCHLOROQUINE SULFATE [Concomitant]
     Indication: RHEUMATOID ARTHRITIS
     Dosage: DRUG NAME: OXIKLORIN
  9. TOCILIZUMAB [Suspect]
     Route: 042
     Dates: start: 20100623
  10. TOCILIZUMAB [Suspect]
     Dosage: START DATE: APPROXIMATE 1 YEAR AGO, DOSE REDUCED.
     Route: 042
  11. METHOTREXATE [Concomitant]
     Indication: RHEUMATOID ARTHRITIS
     Dosage: FREQUENCY: WEEKLY, DRUG NAME; TREXAN (METHOTREXATE)
     Route: 048
     Dates: end: 20101216

REACTIONS (7)
  - PYELONEPHRITIS [None]
  - ANAEMIA [None]
  - NEUTROPENIA [None]
  - MYELODYSPLASTIC SYNDROME [None]
  - THROMBOCYTOPENIA [None]
  - DRUG INEFFECTIVE [None]
  - LEUKAEMIA [None]
